FAERS Safety Report 4845607-2 (Version None)
Quarter: 2005Q4

REPORT INFORMATION
  Report Type: 
  Country: None (occurrence: None)
  Receive Date: 20051201
  Receipt Date: 20051118
  Transmission Date: 20060501
  Serious: Yes (Hospitalization)
  Sender: FDA-Public Use
  Company Number: 2005PV001151

PATIENT
  Age: 66 Year
  Sex: Male
  Weight: 72.5755 kg

DRUGS (12)
  1. BYETTA [Suspect]
     Indication: DIABETES MELLITUS NON-INSULIN-DEPENDENT
     Dosage: 10 MCG; BID; SC; 5 MCG; BID; SC
     Route: 058
     Dates: start: 20050629, end: 20050803
  2. BYETTA [Suspect]
     Indication: DIABETES MELLITUS NON-INSULIN-DEPENDENT
     Dosage: 10 MCG; BID; SC; 5 MCG; BID; SC
     Route: 058
     Dates: start: 20050804
  3. ACTOS [Concomitant]
  4. METFORMIN [Concomitant]
  5. GLUCOTROL XL [Concomitant]
  6. INSULIN [Concomitant]
  7. BENTYL [Concomitant]
  8. PRILOSEC [Concomitant]
  9. EFFEXOR [Concomitant]
  10. CRESTOR [Concomitant]
  11. CIALIS [Concomitant]
  12. SELENIUM SULFIDE [Concomitant]

REACTIONS (1)
  - PANCREATITIS [None]
